FAERS Safety Report 19142132 (Version 2)
Quarter: 2021Q2

REPORT INFORMATION
  Report Type: Report from Study
  Country: US (occurrence: US)
  Receive Date: 20210416
  Receipt Date: 20210506
  Transmission Date: 20210717
  Serious: No
  Sender: FDA-Public Use
  Company Number: US-ORGANON-O2104USA000016

PATIENT
  Age: 34 Year
  Sex: Female
  Weight: 69.85 kg

DRUGS (1)
  1. IMPLANON [Suspect]
     Active Substance: ETONOGESTREL
     Indication: CONTRACEPTION
     Dosage: 1 IMPLANT, 68MG EVERY 3 YEARS, LEFT UPPER ARM
     Route: 059
     Dates: start: 20200305

REACTIONS (10)
  - Implant site discharge [Unknown]
  - Implant site irritation [Unknown]
  - Menstruation normal [Unknown]
  - Complication of device removal [Not Recovered/Not Resolved]
  - Complication of device removal [Not Recovered/Not Resolved]
  - Implant site pruritus [Unknown]
  - Implant site cellulitis [Recovering/Resolving]
  - Implant site scar [Unknown]
  - Implant site fibrosis [Unknown]
  - Implant site induration [Unknown]

NARRATIVE: CASE EVENT DATE: 2020
